FAERS Safety Report 8808638 (Version 1)
Quarter: 2012Q4

REPORT INFORMATION
  Report Type: 
  Country: PL (occurrence: PL)
  Receive Date: 20120926
  Receipt Date: 20120926
  Transmission Date: 20130627
  Serious: Yes (Hospitalization)
  Sender: FDA-Public Use
  Company Number: PL-JNJFOC-20120906879

PATIENT
  Age: 86 Year
  Sex: Female

DRUGS (3)
  1. RISPOLEPT [Suspect]
     Indication: SENILE DEMENTIA
     Route: 048
  2. RISPOLEPT [Suspect]
     Indication: SENILE DEMENTIA
     Route: 048
     Dates: start: 201205
  3. PERPHENAZINE [Suspect]
     Indication: PRODUCT USED FOR UNKNOWN INDICATION
     Route: 065

REACTIONS (5)
  - Aggression [Recovered/Resolved]
  - Dysphonia [Not Recovered/Not Resolved]
  - Dysphagia [Not Recovered/Not Resolved]
  - Face oedema [Not Recovered/Not Resolved]
  - Hypokinesia [Not Recovered/Not Resolved]
